FAERS Safety Report 8946999 (Version 1)
Quarter: 2012Q4

REPORT INFORMATION
  Report Type: 
  Country: DE (occurrence: DE)
  Receive Date: 20121205
  Receipt Date: 20121205
  Transmission Date: 20130627
  Serious: Yes (Hospitalization)
  Sender: FDA-Public Use
  Company Number: DE-ABBOTT-12P-062-0991053-00

PATIENT
  Sex: Male

DRUGS (1)
  1. HUMIRA PRE-FILLED SYRINGE [Suspect]
     Indication: PSORIASIS
     Route: 058
     Dates: start: 20120215, end: 201209

REACTIONS (3)
  - Infectious pleural effusion [Not Recovered/Not Resolved]
  - Gastric ulcer [Not Recovered/Not Resolved]
  - Helicobacter infection [Unknown]
